FAERS Safety Report 7543406-4 (Version None)
Quarter: 2011Q2

REPORT INFORMATION
  Report Type: 
  Country: None (occurrence: None)
  Receive Date: 20110613
  Receipt Date: 20110531
  Transmission Date: 20111010
  Serious: Yes (Hospitalization, Other)
  Sender: FDA-Public Use
  Company Number: KR-UCBSA-032281

PATIENT
  Sex: Female
  Weight: 58.1 kg

DRUGS (10)
  1. DEFLAZACORT [Concomitant]
     Indication: RHEUMATOID ARTHRITIS
     Dosage: 0.5 TABLET
     Route: 048
     Dates: start: 20100702
  2. FOLIC ACID [Concomitant]
     Indication: RHEUMATOID ARTHRITIS
     Route: 048
     Dates: start: 20090902
  3. CERTOLIZUMAB PEGOL [Suspect]
     Indication: RHEUMATOID ARTHRITIS
     Route: 058
     Dates: start: 20100603, end: 20100629
  4. METHOTREXATE [Concomitant]
     Indication: RHEUMATOID ARTHRITIS
     Route: 048
     Dates: start: 20080507
  5. GATIFLOXACIN [Concomitant]
     Indication: SJOGREN'S SYNDROME
     Route: 048
     Dates: start: 20090401
  6. CERTOLIZUMAB PEGOL [Suspect]
     Route: 058
     Dates: start: 20100713, end: 20110506
  7. DOMPERIDONE MALEATE [Concomitant]
     Indication: DYSPEPSIA
     Route: 048
     Dates: start: 20100407
  8. ATENOLOL [Concomitant]
     Indication: HYPERTENSION
     Dosage: 1 TABLET
     Route: 048
     Dates: start: 20080407
  9. NABUMETONE [Concomitant]
     Indication: RHEUMATOID ARTHRITIS
     Dosage: I TABLET
     Route: 048
     Dates: start: 20100407
  10. ULTRACET [Concomitant]
     Indication: RHEUMATOID ARTHRITIS
     Dosage: 2 TABLETS
     Route: 048
     Dates: start: 20100307

REACTIONS (1)
  - PNEUMONIA [None]
